FAERS Safety Report 5323423-5 (Version None)
Quarter: 2007Q2

REPORT INFORMATION
  Report Type: 
  Country: None (occurrence: None)
  Receive Date: 20070514
  Receipt Date: 20070507
  Transmission Date: 20071010
  Serious: Yes (Death, Life-Threatening)
  Sender: FDA-Public Use
  Company Number: PHBS2007JP07733

PATIENT
  Age: 58 Year
  Sex: Male

DRUGS (2)
  1. FUNGUARD [Concomitant]
     Route: 042
     Dates: start: 20070401
  2. GLEEVEC [Suspect]
     Indication: ACUTE LYMPHOCYTIC LEUKAEMIA
     Dosage: 600 MG/D
     Route: 048
     Dates: start: 20070501, end: 20070504

REACTIONS (5)
  - HEPATIC FUNCTION ABNORMAL [None]
  - PYREXIA [None]
  - RASH [None]
  - SEPSIS [None]
  - WHITE BLOOD CELL COUNT DECREASED [None]
